FAERS Safety Report 17112332 (Version 1)
Quarter: 2019Q4

REPORT INFORMATION
  Report Type: Report from Study
  Country: CA (occurrence: CA)
  Receive Date: 20191204
  Receipt Date: 20191204
  Transmission Date: 20200122
  Serious: Yes (Other)
  Sender: FDA-Public Use
  Company Number: CA-JNJFOC-20191130305

PATIENT
  Sex: Female
  Weight: 59.6 kg

DRUGS (9)
  1. RAMIPRIL. [Concomitant]
     Active Substance: RAMIPRIL
     Route: 048
  2. PULMICORT TURBUHALER [Concomitant]
     Active Substance: BUDESONIDE
     Route: 055
  3. PRO CAL [Concomitant]
     Route: 048
  4. VITAMIN B12 [Concomitant]
     Active Substance: CYANOCOBALAMIN
     Route: 058
  5. VIT D [Concomitant]
     Active Substance: VITAMIN D NOS
     Route: 048
  6. COLCHICINE. [Concomitant]
     Active Substance: COLCHICINE
     Route: 048
  7. SALBUTAMOL [Concomitant]
     Active Substance: ALBUTEROL
     Route: 055
  8. BRICANYL [Concomitant]
     Active Substance: TERBUTALINE SULFATE
     Route: 055
  9. STELARA [Suspect]
     Active Substance: USTEKINUMAB
     Indication: CROHN^S DISEASE
     Route: 058
     Dates: start: 20180509

REACTIONS (1)
  - Brain neoplasm malignant [Not Recovered/Not Resolved]
